FAERS Safety Report 5459558-6 (Version None)
Quarter: 2007Q3

REPORT INFORMATION
  Report Type: 
  Country: None (occurrence: None)
  Receive Date: 20070919
  Receipt Date: 20070430
  Transmission Date: 20080115
  Serious: No
  Sender: FDA-Public Use
  Company Number: US-ASTRAZENECA-2007UW08950

PATIENT
  Age: 522 Month
  Sex: Female
  Weight: 54.5 kg

DRUGS (5)
  1. SEROQUEL [Suspect]
     Indication: SLEEP DISORDER
     Route: 048
     Dates: start: 20040101
  2. RISPERDAL [Suspect]
     Dates: start: 20040401
  3. ZYPREXA [Suspect]
  4. PHENTERMINE HYDROCHLORIDE [Concomitant]
     Indication: WEIGHT CONTROL
  5. OTHER PSYCHIATRIC MEDICATION [Concomitant]

REACTIONS (6)
  - BLOOD CHOLESTEROL INCREASED [None]
  - DEPRESSION [None]
  - DIABETES MELLITUS [None]
  - HYPERLIPIDAEMIA [None]
  - OBESITY [None]
  - PAIN IN EXTREMITY [None]
